FAERS Safety Report 4988058-2 (Version None)
Quarter: 2006Q2

REPORT INFORMATION
  Report Type: 
  Country: None (occurrence: None)
  Receive Date: 20060425
  Receipt Date: 20060410
  Transmission Date: 20061013
  Serious: Yes (Hospitalization)
  Sender: FDA-Public Use
  Company Number: 2006050029

PATIENT
  Age: 46 Year
  Sex: Male

DRUGS (9)
  1. LYRICA [Suspect]
     Indication: NEURALGIA
     Dosage: 300 MG (300 MG, 1 IN 1 D), ORAL
     Route: 048
     Dates: start: 20060104, end: 20060106
  2. PARKODEIN FORTE (CODEINE, PARACETAMOL) [Concomitant]
  3. AMILLIN (AMPICILLIN TRIHYDRATE) [Concomitant]
  4. CARBAMAZEPINE [Concomitant]
  5. EFFEXOR [Concomitant]
  6. TRAMOL (TRAMADOL HYDROCHLORIDE) [Concomitant]
  7. PHENERGAN (PROMETHAZINE HYDROCHLORIDE) [Concomitant]
  8. ALL OTHER THERAPEUTIC PRODUCTS (ALL OTHER THERAPEUTIC PRODUCTS) [Concomitant]
  9. METOPROLOL TARTRATE [Concomitant]

REACTIONS (3)
  - FATIGUE [None]
  - MUSCLE SPASMS [None]
  - SPEECH DISORDER [None]
